FAERS Safety Report 7946782-3 (Version None)
Quarter: 2011Q4

REPORT INFORMATION
  Report Type: 
  Country: None (occurrence: None)
  Receive Date: 20111125
  Receipt Date: 20111107
  Transmission Date: 20120403
  Serious: Yes (Other)
  Sender: FDA-Public Use
  Company Number: ADR-2011-11587

PATIENT
  Age: 11 Year
  Sex: Male

DRUGS (7)
  1. LORAZEPAM [Concomitant]
  2. URSO 250 [Concomitant]
  3. BACLOFEN [Suspect]
     Indication: MUSCLE SPASTICITY
     Dosage: 120 MCG, DAILY, INTRATHECAL
     Route: 037
  4. LIPITOR [Concomitant]
  5. SELBEX [Concomitant]
  6. PANTOSIN [Concomitant]
  7. MAGNESIUM SULFATE [Concomitant]

REACTIONS (4)
  - PYREXIA [None]
  - CONSTIPATION [None]
  - MUSCLE SPASTICITY [None]
  - URINARY RETENTION [None]
